FAERS Safety Report 5105948-0 (Version None)
Quarter: 2006Q3

REPORT INFORMATION
  Report Type: 
  Country: None (occurrence: None)
  Receive Date: 20060912
  Receipt Date: 20060825
  Transmission Date: 20061208
  Serious: Yes (Hospitalization)
  Sender: FDA-Public Use
  Company Number: US200603004686

PATIENT
  Age: 47 Year
  Sex: Male
  Weight: 79.4 kg

DRUGS (4)
  1. ZYPREXA [Suspect]
     Indication: DEPRESSION
     Dosage: 20 MG
     Dates: start: 20011101, end: 20031001
  2. ZOLOFT [Concomitant]
  3. SEROQUEL [Concomitant]
  4. HALDOL [Concomitant]

REACTIONS (17)
  - BACK INJURY [None]
  - BLOOD COUNT ABNORMAL [None]
  - CHEST PAIN [None]
  - CONTUSION [None]
  - DIABETES MELLITUS [None]
  - DIABETES MELLITUS INSULIN-DEPENDENT [None]
  - FATIGUE [None]
  - GASTRIC DISORDER [None]
  - HEADACHE [None]
  - LIMB INJURY [None]
  - METABOLIC DISORDER [None]
  - MYALGIA [None]
  - NAUSEA [None]
  - PAIN IN EXTREMITY [None]
  - ROAD TRAFFIC ACCIDENT [None]
  - TOOTHACHE [None]
  - URINARY TRACT INFECTION [None]
